FAERS Safety Report 12216385 (Version 1)
Quarter: 2016Q1

REPORT INFORMATION
  Report Type: Spontaneous
  Country: DE (occurrence: DE)
  Receive Date: 20160329
  Receipt Date: 20160329
  Transmission Date: 20160526
  Serious: Yes (Hospitalization, Other)
  Sender: FDA-Public Use
  Company Number: DE-AMGEN-DEUSP2016038421

PATIENT
  Age: 74 Year
  Sex: Female

DRUGS (6)
  1. RESTEX [Concomitant]
     Active Substance: BENSERAZIDE
     Dosage: 100/25 MG
  2. NOVAMINSULFON [Concomitant]
     Active Substance: METAMIZOLE
     Dosage: 1 DF, 3X/DAY
  3. LODOTRA [Concomitant]
     Active Substance: PREDNISONE
     Dosage: 7 MG, 1X/DAY
  4. ENBREL [Suspect]
     Active Substance: ETANERCEPT
     Indication: RHEUMATOID ARTHRITIS
     Dosage: 50 MG, WEEKLY
     Route: 065
     Dates: start: 20160106, end: 20160302
  5. LYRICA [Concomitant]
     Active Substance: PREGABALIN
     Dosage: 75 MG, UNK
  6. CELECOXIB. [Concomitant]
     Active Substance: CELECOXIB
     Dosage: 200 1X1

REACTIONS (1)
  - Cataract [Not Recovered/Not Resolved]
